FAERS Safety Report 15234935 (Version 1)
Quarter: 2018Q3

REPORT INFORMATION
  Report Type: Spontaneous
  Country: US (occurrence: US)
  Receive Date: 20180803
  Receipt Date: 20180803
  Transmission Date: 20181010
  Serious: Yes (Other)
  Sender: FDA-Public Use
  Company Number: US-ACCORD-065254

PATIENT
  Age: 44 Year
  Sex: Female
  Weight: 91.17 kg

DRUGS (4)
  1. CYTOXAN [Concomitant]
     Active Substance: CYCLOPHOSPHAMIDE
     Dosage: STRENGTH: 100 MG
     Route: 042
  2. DECADRON [Concomitant]
     Active Substance: DEXAMETHASONE
     Dosage: STRENGTH: 1 MG
     Route: 042
  3. DOCETAXEL ACCORD [Suspect]
     Active Substance: DOCETAXEL
     Indication: BREAST CANCER
     Dosage: STRENGTH: 20 MG
     Route: 042
     Dates: start: 20110506, end: 20110708
  4. ALOXI [Concomitant]
     Active Substance: PALONOSETRON HYDROCHLORIDE
     Route: 042

REACTIONS (1)
  - Alopecia [Not Recovered/Not Resolved]

NARRATIVE: CASE EVENT DATE: 201201
